FAERS Safety Report 6993161-1 (Version None)
Quarter: 2010Q3

REPORT INFORMATION
  Report Type: 
  Country: None (occurrence: None)
  Receive Date: 20100917
  Receipt Date: 20091005
  Transmission Date: 20110219
  Serious: Yes (Hospitalization)
  Sender: FDA-Public Use
  Company Number: US-ASTRAZENECA-2009SE17995

PATIENT
  Age: 34 Year
  Sex: Female
  Weight: 54.4 kg

DRUGS (2)
  1. SEROQUEL XR [Suspect]
     Indication: BIPOLAR DISORDER
     Route: 048
  2. KLONOPIN [Concomitant]
     Dosage: PRN

REACTIONS (2)
  - DRUG DOSE OMISSION [None]
  - INTENTIONAL OVERDOSE [None]
